FAERS Safety Report 23757818 (Version 1)
Quarter: 2024Q2

REPORT INFORMATION
  Report Type: Spontaneous
  Country: US (occurrence: US)
  Receive Date: 20240418
  Receipt Date: 20240418
  Transmission Date: 20240716
  Serious: Yes (Death, Other)
  Sender: FDA-Public Use
  Company Number: US-BRISTOL-MYERS SQUIBB COMPANY-2024-060995

PATIENT
  Age: 75 Year
  Sex: Female

DRUGS (4)
  1. OPDIVO [Suspect]
     Active Substance: NIVOLUMAB
     Indication: Lung carcinoma cell type unspecified stage 0
     Dosage: DOSE : OPDIVO 360 MG YERVOY 90 MG;     FREQ : OPDIVO 360 MG EVERY WEEK  3 WEEKS YERVOY 90 MG EVERY 6
     Route: 042
  2. YERVOY [Suspect]
     Active Substance: IPILIMUMAB
     Indication: Lung carcinoma cell type unspecified stage 0
     Dosage: DOSE : OPDIVO 360 MG YERVOY 90 MG;     FREQ : OPDIVO 360 MG EVERY WEEK  3 WEEKS YERVOY 90 MG EVERY 6
     Route: 042
  3. PEMETREXED [Concomitant]
     Active Substance: PEMETREXED
     Indication: Product used for unknown indication
  4. CARBOPLATIN [Concomitant]
     Active Substance: CARBOPLATIN
     Indication: Product used for unknown indication

REACTIONS (1)
  - Death [Fatal]
